FAERS Safety Report 8315844 (Version 2)
Quarter: 2012Q4

REPORT INFORMATION
  Report Type: 
  Country: FR (occurrence: FR)
  Receive Date: 20111229
  Receipt Date: 20121219
  Transmission Date: 20130627
  Serious: Yes (Life-Threatening)
  Sender: FDA-Public Use
  Company Number: FR-GLAXOSMITHKLINE-B0771610A

PATIENT
  Age: 42 None
  Sex: Female

DRUGS (3)
  1. DEROXAT [Suspect]
     Indication: DEPRESSION
     Route: 048
     Dates: end: 20040217
  2. IMOVANE [Suspect]
     Indication: DEPRESSION
     Route: 048
     Dates: end: 20040217
  3. XANAX [Suspect]
     Indication: DEPRESSION
     Route: 048
     Dates: end: 20040217

REACTIONS (12)
  - Hepatitis fulminant [Recovered/Resolved with Sequelae]
  - Asthenia [Unknown]
  - Decreased appetite [Unknown]
  - Weight decreased [Unknown]
  - Jaundice [Unknown]
  - Hepatic function abnormal [Unknown]
  - Hepatocellular injury [Unknown]
  - Coagulation factor V level decreased [Unknown]
  - Ascites [Unknown]
  - Histiocytosis haematophagic [Unknown]
  - Hepatic ischaemia [Unknown]
  - Hepatic necrosis [Unknown]
